FAERS Safety Report 11194784 (Version 1)
Quarter: 2015Q2

REPORT INFORMATION
  Report Type: Spontaneous
  Country: US (occurrence: US)
  Receive Date: 20150617
  Receipt Date: 20150617
  Transmission Date: 20150821
  Serious: Yes (Hospitalization, Other)
  Sender: FDA-Public Use
  Company Number: US-PAR PHARMACEUTICAL, INC-2015SCPR014049

PATIENT

DRUGS (1)
  1. AMLODIPINE BESYLATE AND BENAZEPRIL HCL [Suspect]
     Active Substance: AMLODIPINE BESYLATE\BENAZEPRIL HYDROCHLORIDE
     Indication: PRODUCT USED FOR UNKNOWN INDICATION
     Dosage: 240 MG OF AMLODIPINE AND 480 MG OF BENAZEPRIL, UNKNOWN
     Route: 048

REACTIONS (6)
  - Hyperdynamic left ventricle [Unknown]
  - Toxicity to various agents [Recovering/Resolving]
  - Mental status changes [Unknown]
  - Heart rate increased [Unknown]
  - Hypotension [Recovering/Resolving]
  - Pneumonia aspiration [Unknown]
